APPROVED DRUG PRODUCT: MOEXIPRIL HYDROCHLORIDE
Active Ingredient: MOEXIPRIL HYDROCHLORIDE
Strength: 7.5MG
Dosage Form/Route: TABLET;ORAL
Application: A078454 | Product #001
Applicant: APOTEX INC
Approved: Jun 2, 2008 | RLD: No | RS: No | Type: DISCN